FAERS Safety Report 15661710 (Version 4)
Quarter: 2020Q3

REPORT INFORMATION
  Report Type: Spontaneous
  Country: US (occurrence: US)
  Receive Date: 20181127
  Receipt Date: 20200914
  Transmission Date: 20201102
  Serious: Yes (Other)
  Sender: FDA-Public Use
  Company Number: US-GILEAD-2018-0376139

PATIENT
  Sex: Male
  Weight: 89.8 kg

DRUGS (18)
  1. STRIBILD [Suspect]
     Active Substance: COBICISTAT\ELVITEGRAVIR\EMTRICITABINE\TENOFOVIR DISOPROXIL FUMARATE
     Indication: PRODUCT USED FOR UNKNOWN INDICATION
     Dosage: 1 DOSAGE FORM, QD
     Route: 048
     Dates: start: 2013, end: 20160112
  2. TRUVADA [Suspect]
     Active Substance: EMTRICITABINE\TENOFOVIR DISOPROXIL FUMARATE
     Dosage: UNK UNK, BID
     Route: 048
     Dates: start: 2010, end: 2016
  3. ESCITALOPRAM [Concomitant]
     Active Substance: ESCITALOPRAM OXALATE
  4. CITALOPRAM [Concomitant]
     Active Substance: CITALOPRAM HYDROBROMIDE
  5. REYATAZ [Concomitant]
     Active Substance: ATAZANAVIR SULFATE
  6. OSELTAMIVIR [Concomitant]
     Active Substance: OSELTAMIVIR
  7. MYCOSTATIN [Concomitant]
     Active Substance: NYSTATIN
  8. STRIBILD [Suspect]
     Active Substance: COBICISTAT\ELVITEGRAVIR\EMTRICITABINE\TENOFOVIR DISOPROXIL FUMARATE
     Dosage: UNK
     Route: 048
     Dates: start: 2016, end: 2017
  9. SUSTIVA [Concomitant]
     Active Substance: EFAVIRENZ
  10. VALTREX [Concomitant]
     Active Substance: VALACYCLOVIR HYDROCHLORIDE
  11. HARVONI [Concomitant]
     Active Substance: LEDIPASVIR\SOFOSBUVIR
  12. TRUVADA [Suspect]
     Active Substance: EMTRICITABINE\TENOFOVIR DISOPROXIL FUMARATE
     Indication: PRODUCT USED FOR UNKNOWN INDICATION
     Dosage: 1 DOSAGE FORM, BID
     Route: 048
     Dates: start: 2010, end: 2013
  13. KALETRA [Concomitant]
     Active Substance: LOPINAVIR\RITONAVIR
  14. EFINACONAZOLE [Concomitant]
     Active Substance: EFINACONAZOLE
  15. DRISDOL [Concomitant]
     Active Substance: ERGOCALCIFEROL
  16. GENVOYA [Concomitant]
     Active Substance: COBICISTAT\ELVITEGRAVIR\EMTRICITABINE\TENOFOVIR ALAFENAMIDE FUMARATE
  17. TUMS ANTACID [Concomitant]
  18. RETROVIR [Concomitant]
     Active Substance: ZIDOVUDINE

REACTIONS (7)
  - Anhedonia [Not Recovered/Not Resolved]
  - Off label use [Recovered/Resolved]
  - Emotional distress [Not Recovered/Not Resolved]
  - Chronic kidney disease [Not Recovered/Not Resolved]
  - Anxiety [Not Recovered/Not Resolved]
  - Pain [Not Recovered/Not Resolved]
  - Economic problem [Unknown]

NARRATIVE: CASE EVENT DATE: 2010
